FAERS Safety Report 10888216 (Version 1)
Quarter: 2015Q1

REPORT INFORMATION
  Report Type: Spontaneous
  Country: GB (occurrence: GB)
  Receive Date: 20150304
  Receipt Date: 20150304
  Transmission Date: 20150721
  Serious: Yes (Hospitalization)
  Sender: FDA-Public Use
  Company Number: PHHY2015GB024339

PATIENT
  Age: 92 Year
  Sex: Female

DRUGS (1)
  1. PARACETAMOL [Suspect]
     Active Substance: ACETAMINOPHEN
     Indication: PRODUCT USED FOR UNKNOWN INDICATION
     Route: 065

REACTIONS (6)
  - Coagulopathy [Recovered/Resolved]
  - Overdose [Unknown]
  - Brain stem infarction [Unknown]
  - Unresponsive to stimuli [Unknown]
  - Oculocephalogyric reflex absent [Unknown]
  - Acute kidney injury [Recovered/Resolved]
